FAERS Safety Report 10828637 (Version 1)
Quarter: 2015Q1

REPORT INFORMATION
  Report Type: Spontaneous
  Country: US (occurrence: US)
  Receive Date: 20150219
  Receipt Date: 20150219
  Transmission Date: 20150721
  Serious: Yes (Death, Life-Threatening, Hospitalization, Other)
  Sender: FDA-Public Use
  Company Number: US-SUN PHARMACEUTICAL INDUSTRIES LTD-2015SUN00392

PATIENT
  Age: 19 Year
  Sex: Male

DRUGS (1)
  1. METFORMIN HCL 500MG TABLETS [Suspect]
     Active Substance: METFORMIN HYDROCHLORIDE
     Indication: PRODUCT USED FOR UNKNOWN INDICATION
     Dosage: 500 MG, INGESTED 240 TABLETS
     Route: 065

REACTIONS (3)
  - Leukaemoid reaction [Not Recovered/Not Resolved]
  - Retching [None]
  - Intentional overdose [Fatal]
